FAERS Safety Report 9356516 (Version 2)
Quarter: 2013Q3

REPORT INFORMATION
  Report Type: Report from Study
  Country: US (occurrence: US)
  Receive Date: 20130619
  Receipt Date: 20130816
  Transmission Date: 20140515
  Serious: Yes (Death, Hospitalization)
  Sender: FDA-Public Use
  Company Number: US-ABBOTT-13P-163-1105809-00

PATIENT
  Age: 74 Year
  Sex: Male

DRUGS (19)
  1. ANDROGEL [Suspect]
     Indication: BLOOD TESTOSTERONE DECREASED
     Route: 061
     Dates: start: 20100927, end: 20110422
  2. ALLOPURINOL [Concomitant]
  3. METOPROLOL [Concomitant]
  4. DINASTERIDE [Concomitant]
  5. SIMVASTATIN [Concomitant]
  6. BYETTA [Concomitant]
  7. ASA [Concomitant]
  8. NIACIN [Concomitant]
  9. GLIPIZIDE [Concomitant]
  10. TAMUSULOSIN [Concomitant]
  11. JANUVIA [Concomitant]
  12. DIOVAN [Concomitant]
  13. PLETAL [Concomitant]
  14. LASIX [Concomitant]
  15. SYNTHROID [Concomitant]
  16. SPIRONOLACTONE [Concomitant]
  17. TOPIRAMATE [Concomitant]
  18. NITROGLYCERIN [Concomitant]
  19. FLAGYL [Concomitant]

REACTIONS (2)
  - Acute myocardial infarction [Fatal]
  - Cardiogenic shock [Fatal]
